FAERS Safety Report 8062257-8 (Version None)
Quarter: 2012Q1

REPORT INFORMATION
  Report Type: 
  Country: None (occurrence: None)
  Receive Date: 20120123
  Receipt Date: 20120112
  Transmission Date: 20120608
  Serious: Yes (Hospitalization)
  Sender: FDA-Public Use
  Company Number: BE-JNJFOC-20120104906

PATIENT
  Age: 40 Year
  Sex: Female

DRUGS (2)
  1. MEDROL [Concomitant]
     Indication: COLITIS ULCERATIVE
     Dates: start: 20110701
  2. REMICADE [Suspect]
     Indication: COLITIS ULCERATIVE
     Dosage: 15 MONTH DURATION
     Route: 042
     Dates: start: 20100901, end: 20120101

REACTIONS (1)
  - CERVIX CARCINOMA [None]
